FAERS Safety Report 7826902 (Version 3)
Quarter: 2013Q2

REPORT INFORMATION
  Report Type: Spontaneous
  Country: US (occurrence: None)
  Receive Date: 20101130
  Receipt Date: 20121203
  Transmission Date: 20140414
  Serious: Yes (Hospitalization, Other)
  Sender: FDA-Public Use
  Company Number: 2010SP004278

PATIENT
  Age: 23 Year
  Sex: Female
  Weight: 86.18 kg

DRUGS (4)
  1. NUVARING [Suspect]
     Indication: DYSFUNCTIONAL UTERINE BLEEDING
     Dates: start: 20071228, end: 20080117
  2. NUVARING [Suspect]
     Indication: CONTRACEPTION
     Dates: start: 20071228, end: 20080117
  3. FEMCON FE (ORAL CONTRACEPTIVE) [Concomitant]
  4. NSAID [Concomitant]

REACTIONS (8)
  - PULMONARY EMBOLISM [None]
  - CHLAMYDIA TEST POSITIVE [None]
  - DIARRHOEA [None]
  - NAUSEA [None]
  - MUSCLE SPASMS [None]
  - VOMITING [None]
  - Off label use [None]
  - Vaginal dysplasia [None]
